FAERS Safety Report 4718919-0 (Version None)
Quarter: 2005Q3

REPORT INFORMATION
  Report Type: 
  Country: None (occurrence: None)
  Receive Date: 20050719
  Receipt Date: 20050706
  Transmission Date: 20060218
  Serious: Yes (Hospitalization)
  Sender: FDA-Public Use
  Company Number: 2005093378

PATIENT
  Age: 67 Year
  Sex: Male
  Weight: 83 kg

DRUGS (16)
  1. NORVASC [Suspect]
     Indication: HYPERTENSION
     Dosage: 20 MG (10 MG TWICE DAILY ORAL)
     Route: 048
     Dates: start: 19980603, end: 20000524
  2. CARVEDILOL [Suspect]
     Indication: HYPERTENSION
     Dosage: 20 MG (QD) ORAL
     Route: 048
     Dates: start: 19990825
  3. LENDORM [Concomitant]
  4. LORCAM (LORNOXICAM) [Concomitant]
  5. RINLAXER (CHLORPHENESIN CARBAMATE) [Concomitant]
  6. SOLON (SOFALCONE) [Concomitant]
  7. CERNILTON (CERNITIN GBX, CERNITIN T60) [Concomitant]
  8. HARNAL (TAMSULOSIN HYDROCHLORIDE) [Concomitant]
  9. HERBAL PREPARATION [Concomitant]
  10. COENZYME Q10 [Concomitant]
  11. RIZE (CLOTIAZEPAM) [Concomitant]
  12. SALICYLAMIDE [Concomitant]
  13. MEDICON (DEXTROMETHORPHAN HYDROBROMIDE) [Concomitant]
  14. ACETAMINOPHEN [Concomitant]
  15. CAFFEINE [Concomitant]
  16. PROMETHAZINE [Concomitant]

REACTIONS (8)
  - ATRIOVENTRICULAR BLOCK [None]
  - ATRIOVENTRICULAR BLOCK COMPLETE [None]
  - ATRIOVENTRICULAR BLOCK SECOND DEGREE [None]
  - BRADYCARDIA [None]
  - DIABETES MELLITUS [None]
  - DIZZINESS [None]
  - DYSPNOEA [None]
  - NODAL RHYTHM [None]
